FAERS Safety Report 18659931 (Version 1)
Quarter: 2020Q4

REPORT INFORMATION
  Report Type: Spontaneous
  Country: CN (occurrence: CN)
  Receive Date: 20201224
  Receipt Date: 20201224
  Transmission Date: 20210114
  Serious: Yes (Hospitalization, Other)
  Sender: FDA-Public Use
  Company Number: CN-PFIZER INC-2020500844

PATIENT
  Age: 56 Year
  Sex: Female
  Weight: 62 kg

DRUGS (2)
  1. SOLU-MEDROL [Suspect]
     Active Substance: METHYLPREDNISOLONE SODIUM SUCCINATE
     Indication: PNEUMONIA
     Dosage: 80 MG, 1X/DAY
     Route: 042
     Dates: start: 20201015, end: 20201020
  2. CEFTAZIDIME. [Concomitant]
     Active Substance: CEFTAZIDIME
     Indication: PNEUMONIA
     Dosage: 3 G, 2X/DAY
     Route: 042
     Dates: start: 20201009, end: 20201021

REACTIONS (6)
  - Confusional state [Recovering/Resolving]
  - Abnormal behaviour [Recovering/Resolving]
  - Hepatic encephalopathy [Recovering/Resolving]
  - Hepatic cirrhosis [Recovering/Resolving]
  - Condition aggravated [Recovering/Resolving]
  - Off label use [Unknown]

NARRATIVE: CASE EVENT DATE: 20201015
